FAERS Safety Report 9997066 (Version 7)
Quarter: 2016Q1

REPORT INFORMATION
  Report Type: Spontaneous
  Country: US (occurrence: US)
  Receive Date: 20140311
  Receipt Date: 20160304
  Transmission Date: 20160526
  Serious: Yes (Hospitalization, Other)
  Sender: FDA-Public Use
  Company Number: US-009507513-1403USA000682

PATIENT
  Sex: Female
  Weight: 69.84 kg

DRUGS (6)
  1. CALCIUM (UNSPECIFIED) [Concomitant]
     Active Substance: CALCIUM
     Indication: ROUTINE HEALTH MAINTENANCE
     Dosage: 600 MG, ONCE OR TWICE A DAY
     Route: 065
     Dates: start: 1999, end: 20080923
  2. VITAMIN D [Concomitant]
     Active Substance: CHOLECALCIFEROL
     Indication: ROUTINE HEALTH MAINTENANCE
     Dosage: UNK UNK, UNKNOWN
     Route: 065
     Dates: start: 1999
  3. CALCIUM (UNSPECIFIED) [Concomitant]
     Active Substance: CALCIUM
     Dosage: 600 MG, BID
     Route: 065
     Dates: start: 20080923
  4. FOSAMAX [Suspect]
     Active Substance: ALENDRONATE SODIUM
     Indication: OSTEOPENIA
     Dosage: 70 MG, QW
     Route: 048
     Dates: start: 200110, end: 20101103
  5. FOSAMAX [Suspect]
     Active Substance: ALENDRONATE SODIUM
     Indication: OSTEOPOROSIS POSTMENOPAUSAL
     Dosage: 10 MG, QD
     Route: 048
     Dates: start: 1999, end: 200110
  6. FOSAMAX PLUS D [Suspect]
     Active Substance: ALENDRONATE SODIUM\CHOLECALCIFEROL
     Indication: OSTEOPOROSIS POSTMENOPAUSAL
     Dosage: 70 MG, QW
     Route: 048

REACTIONS (32)
  - Anaphylactic shock [Unknown]
  - Foot fracture [Recovered/Resolved]
  - Anaemia postoperative [Unknown]
  - Polyarthritis [Not Recovered/Not Resolved]
  - Oral disorder [Unknown]
  - Iliotibial band syndrome [Unknown]
  - Pain in extremity [Unknown]
  - Femur fracture [Recovering/Resolving]
  - Femur fracture [Recovered/Resolved]
  - Depression [Unknown]
  - Tonsillectomy [Unknown]
  - Kyphosis [Not Recovered/Not Resolved]
  - Vitamin D deficiency [Unknown]
  - Iodine allergy [Unknown]
  - Arthralgia [Unknown]
  - Groin pain [Unknown]
  - Fatigue [Unknown]
  - Bursitis [Unknown]
  - Generalised anxiety disorder [Unknown]
  - Blood cholesterol increased [Unknown]
  - Hyperlipidaemia [Unknown]
  - Limb injury [Unknown]
  - Pain in extremity [Unknown]
  - Pain in extremity [Unknown]
  - Foot fracture [Unknown]
  - Tooth disorder [Unknown]
  - Upper limb fracture [Unknown]
  - Hypothyroidism [Unknown]
  - Vitamin D deficiency [Recovered/Resolved]
  - Electrocardiogram ST-T segment abnormal [Unknown]
  - Breast calcifications [Unknown]
  - Foot fracture [Unknown]

NARRATIVE: CASE EVENT DATE: 2001
